FAERS Safety Report 13663380 (Version 1)
Quarter: 2017Q2

REPORT INFORMATION
  Report Type: Spontaneous
  Country: CH (occurrence: CH)
  Receive Date: 20170619
  Receipt Date: 20170619
  Transmission Date: 20170830
  Serious: Yes (Other)
  Sender: FDA-Public Use
  Company Number: CH-SUN PHARMACEUTICAL INDUSTRIES LTD-2016R1-114613

PATIENT
  Age: 33 Year
  Sex: Female

DRUGS (4)
  1. OXCARBAZEPINE. [Suspect]
     Active Substance: OXCARBAZEPINE
     Indication: EPILEPSY
     Dosage: 1200 MG, DAILY
     Route: 065
  2. RIFAMPICIN [Interacting]
     Active Substance: RIFAMPIN
     Indication: ACNE
     Dosage: 600 MG, DAILY
     Route: 065
  3. OXCARBAZEPINE. [Interacting]
     Active Substance: OXCARBAZEPINE
     Dosage: 2100 MG, DAILY
     Route: 065
  4. CLINDAMYCIN. [Concomitant]
     Active Substance: CLINDAMYCIN
     Indication: ACNE
     Dosage: 300 MG, BID
     Route: 065

REACTIONS (2)
  - Anticonvulsant drug level decreased [Recovered/Resolved]
  - Drug interaction [Recovered/Resolved]
